FAERS Safety Report 7044096-X (Version None)
Quarter: 2010Q4

REPORT INFORMATION
  Report Type: 
  Country: None (occurrence: None)
  Receive Date: 20101013
  Receipt Date: 20101004
  Transmission Date: 20110411
  Serious: Yes (Other)
  Sender: FDA-Public Use
  Company Number: US-PFIZER INC-2010125744

PATIENT
  Sex: Female
  Weight: 72.562 kg

DRUGS (1)
  1. ZOLOFT [Suspect]
     Dosage: UNK MG, UNK
     Route: 048
     Dates: start: 20100101

REACTIONS (6)
  - AGGRESSION [None]
  - DRUG INEFFECTIVE [None]
  - EMOTIONAL DISORDER [None]
  - IMPAIRED WORK ABILITY [None]
  - INSOMNIA [None]
  - NERVOUSNESS [None]
